FAERS Safety Report 9663627 (Version 6)
Quarter: 2014Q1

REPORT INFORMATION
  Report Type: Spontaneous
  Country: US (occurrence: US)
  Receive Date: 20131101
  Receipt Date: 20140306
  Transmission Date: 20141002
  Serious: Yes (Other)
  Sender: FDA-Public Use
  Company Number: US-PFIZER INC-2013311767

PATIENT
  Age: 57 Year
  Sex: Female
  Weight: 80.73 kg

DRUGS (15)
  1. LYRICA [Suspect]
     Indication: FIBROMYALGIA
     Dosage: UNK
     Route: 048
     Dates: start: 2012
  2. LYRICA [Suspect]
     Dosage: 100 MG, 3X/DAY
     Route: 048
  3. LYRICA [Suspect]
     Dosage: 50 MG, 2X/DAY
     Route: 048
     Dates: start: 2013, end: 2013
  4. LYRICA [Suspect]
     Dosage: 50 MG, 3X/DAY
     Route: 048
     Dates: start: 2013, end: 2013
  5. LYRICA [Suspect]
     Dosage: 100MG IN MORNING, 75MG IN AFTERNOON AND 100MG AT NIGHT
     Route: 048
     Dates: start: 2013, end: 2013
  6. LYRICA [Suspect]
     Dosage: 100 MG, 3X/DAY
     Route: 048
     Dates: start: 2013, end: 2013
  7. SPIRIVA [Concomitant]
     Indication: CHRONIC OBSTRUCTIVE PULMONARY DISEASE
     Dosage: UNK
  8. SPIRIVA [Concomitant]
     Indication: EMPHYSEMA
  9. SPIRIVA [Concomitant]
     Indication: BRONCHITIS
  10. ADVAIR [Concomitant]
     Indication: CHRONIC OBSTRUCTIVE PULMONARY DISEASE
     Dosage: UNK
  11. ADVAIR [Concomitant]
     Indication: EMPHYSEMA
  12. ADVAIR [Concomitant]
     Indication: BRONCHITIS
  13. ALBUTEROL [Concomitant]
     Indication: CHRONIC OBSTRUCTIVE PULMONARY DISEASE
     Dosage: UNK
  14. ALBUTEROL [Concomitant]
     Indication: EMPHYSEMA
  15. ALBUTEROL [Concomitant]
     Indication: BRONCHITIS

REACTIONS (8)
  - Activities of daily living impaired [Unknown]
  - Hypersomnia [Unknown]
  - Dizziness [Unknown]
  - Dry mouth [Unknown]
  - Somnolence [Unknown]
  - Speech disorder [Unknown]
  - Fatigue [Unknown]
  - Malaise [Unknown]
